FAERS Safety Report 5019122-X (Version None)
Quarter: 2006Q2

REPORT INFORMATION
  Report Type: 
  Country: None (occurrence: None)
  Receive Date: 20060531
  Receipt Date: 20060522
  Transmission Date: 20061013
  Serious: Yes (Other)
  Sender: FDA-Public Use
  Company Number: 2006067325

PATIENT
  Age: 42 Year
  Sex: Male
  Weight: 95.709 kg

DRUGS (2)
  1. INSPRA [Suspect]
     Indication: CARDIAC FAILURE CONGESTIVE
     Dosage: 25 MG (25 MG, DAILY INTERVAL:  EVERY DAY), ORAL
     Route: 048
     Dates: start: 20050501
  2. SYNTHROID [Concomitant]

REACTIONS (5)
  - COUGH [None]
  - DEPRESSED LEVEL OF CONSCIOUSNESS [None]
  - FATIGUE [None]
  - LOSS OF CONSCIOUSNESS [None]
  - THROAT IRRITATION [None]
